FAERS Safety Report 7093884-2 (Version None)
Quarter: 2010Q4

REPORT INFORMATION
  Report Type: 
  Country: None (occurrence: None)
  Receive Date: 20101110
  Receipt Date: 20101105
  Transmission Date: 20110411
  Serious: Yes (Death)
  Sender: FDA-Public Use
  Company Number: PHHY2010NL75104

PATIENT
  Age: 65 Year
  Sex: Female
  Weight: 105 kg

DRUGS (1)
  1. ALISKIREN ALI+TAB [Suspect]
     Dosage: 300 MG

REACTIONS (1)
  - DEATH [None]
